FAERS Safety Report 4499689-0 (Version None)
Quarter: 2004Q4

REPORT INFORMATION
  Report Type: 
  Country: None (occurrence: None)
  Receive Date: 20041108
  Receipt Date: 20041029
  Transmission Date: 20050328
  Serious: Yes (Death, Life-Threatening, Disabling)
  Sender: FDA-Public Use
  Company Number: 200409185

PATIENT
  Age: 80 Year
  Sex: Male
  Weight: 75 kg

DRUGS (6)
  1. STREPTOKINASE (STREPTOKINASE) [Suspect]
     Indication: MYOCARDIAL INFARCTION
     Dosage: 1.2 MIU DAILY IV
     Route: 042
     Dates: start: 20041011, end: 20041011
  2. ASPIRIN [Suspect]
     Indication: MYOCARDIAL INFARCTION
     Dosage: 500 MG DAILY IV
     Route: 042
     Dates: start: 20041011, end: 20041011
  3. HEPARIN [Suspect]
     Indication: MYOCARDIAL INFARCTION
     Dosage: 4000 IU DAILY IV; SEE IMAGE
     Route: 042
     Dates: start: 20011011, end: 20041011
  4. METOPROLOL [Suspect]
     Indication: MYOCARDIAL INFARCTION
     Dosage: 2 GM DAILY IV
     Route: 042
  5. FUROSEMIDE [Suspect]
     Indication: CARDIAC FAILURE
     Dosage: 200 MG DAILY IV
     Route: 042
     Dates: start: 20041011, end: 20041011
  6. DIAZEPAM [Concomitant]

REACTIONS (9)
  - ACUTE MYOCARDIAL INFARCTION [None]
  - CARDIAC MURMUR [None]
  - CARDIAC TAMPONADE [None]
  - CARDIOGENIC SHOCK [None]
  - EPILEPSY [None]
  - MYOCARDIAL RUPTURE [None]
  - PERICARDIAL HAEMORRHAGE [None]
  - PULMONARY OEDEMA [None]
  - VENTRICULAR SEPTAL DEFECT ACQUIRED [None]
